FAERS Safety Report 7481676-1 (Version None)
Quarter: 2011Q2

REPORT INFORMATION
  Report Type: 
  Country: None (occurrence: None)
  Receive Date: 20110516
  Receipt Date: 20110511
  Transmission Date: 20111010
  Serious: Yes (Death)
  Sender: FDA-Public Use
  Company Number: CA-ROCHE-776479

PATIENT
  Age: 63 Year
  Sex: Female

DRUGS (9)
  1. CODEINE SULFATE [Suspect]
     Route: 048
  2. NAPROXEN [Suspect]
     Route: 048
  3. DIAZEPAM [Suspect]
     Route: 065
  4. CITALOPRAM HYDROBROMIDE [Suspect]
     Route: 065
  5. NORVASC [Suspect]
     Route: 048
  6. PROPRANOLOL [Suspect]
     Route: 048
  7. TOPIRAMATE [Suspect]
     Route: 048
  8. ACETAMINOPHEN [Suspect]
     Route: 048
  9. CYCLOBENZAPRINE [Suspect]
     Route: 048

REACTIONS (2)
  - TOXICITY TO VARIOUS AGENTS [None]
  - COMPLETED SUICIDE [None]
